FAERS Safety Report 18604117 (Version 1)
Quarter: 2020Q4

REPORT INFORMATION
  Report Type: Report from Study
  Country: None (occurrence: US)
  Receive Date: 20201211
  Receipt Date: 20201211
  Transmission Date: 20210114
  Serious: Yes (Other)
  Sender: FDA-Public Use
  Company Number: US-ABBVIE-20K-163-3681811-00

PATIENT
  Sex: Male

DRUGS (1)
  1. HUMIRA [Suspect]
     Active Substance: ADALIMUMAB
     Indication: RHEUMATOID ARTHRITIS
     Route: 058

REACTIONS (11)
  - Localised infection [Not Recovered/Not Resolved]
  - Balance disorder [Unknown]
  - Scoliosis [Not Recovered/Not Resolved]
  - Hypertension [Unknown]
  - Nervous system disorder [Not Recovered/Not Resolved]
  - Glucose tolerance impaired [Not Recovered/Not Resolved]
  - Head injury [Unknown]
  - Fall [Unknown]
  - Epilepsy [Not Recovered/Not Resolved]
  - Spinal operation [Not Recovered/Not Resolved]
  - Muscle spasms [Not Recovered/Not Resolved]
